FAERS Safety Report 4540098-3 (Version None)
Quarter: 2004Q4

REPORT INFORMATION
  Report Type: 
  Country: None (occurrence: None)
  Receive Date: 20041223
  Receipt Date: 20041213
  Transmission Date: 20050328
  Serious: Yes (Other)
  Sender: FDA-Public Use
  Company Number: 2004097092

PATIENT
  Age: 43 Year
  Sex: Female
  Weight: 70.3075 kg

DRUGS (5)
  1. CELEBREX [Suspect]
     Indication: ARTHRITIS
     Dosage: 200 MG (200 MG, DAILY  INTERVAL: EVERYDAY), ORAL
     Route: 048
  2. IBUPROFEN [Suspect]
     Indication: ILL-DEFINED DISORDER
  3. DEXTROPROPOXYPHENE HYDROCHLORIDE (DEXTROPROPOXYPHENE HYDROCHLORIDE) [Concomitant]
  4. ACETAMINOPHEN [Concomitant]
  5. GABAPENTIN [Concomitant]

REACTIONS (3)
  - GASTROINTESTINAL HAEMORRHAGE [None]
  - HAEMORRHAGE [None]
  - HAEMORRHOIDS [None]
